FAERS Safety Report 26083168 (Version 1)
Quarter: 2025Q4

REPORT INFORMATION
  Report Type: Spontaneous
  Country: CN (occurrence: CN)
  Receive Date: 20251124
  Receipt Date: 20251124
  Transmission Date: 20260118
  Serious: Yes (Hospitalization, Other)
  Sender: PFIZER
  Company Number: CN-PFIZER INC-PV202500136360

PATIENT
  Age: 58 Year
  Sex: Female
  Weight: 46 kg

DRUGS (6)
  1. EPIRUBICIN HYDROCHLORIDE [Suspect]
     Active Substance: EPIRUBICIN HYDROCHLORIDE
     Indication: Diffuse large B-cell lymphoma
     Dosage: 100 MG, 1X/DAY
     Route: 041
     Dates: start: 20250918, end: 20250918
  2. CYCLOPHOSPHAMIDE [Suspect]
     Active Substance: CYCLOPHOSPHAMIDE
     Dosage: 1095 MG, 1X/DAY
     Route: 041
     Dates: start: 20250918, end: 20250918
  3. METHYLPREDNISOLONE SODIUM SUCCINATE [Suspect]
     Active Substance: METHYLPREDNISOLONE SODIUM SUCCINATE
     Indication: Diffuse large B-cell lymphoma
     Dosage: 80 MG, 1X/DAY
     Route: 041
     Dates: start: 20250918, end: 20250922
  4. ZANUBRUTINIB [Concomitant]
     Active Substance: ZANUBRUTINIB
     Indication: Diffuse large B-cell lymphoma
     Dosage: 160 MG, 2X/DAY
     Route: 048
     Dates: start: 20250916, end: 20251003
  5. VINCRISTINE SULFATE [Concomitant]
     Active Substance: VINCRISTINE SULFATE
     Indication: Diffuse large B-cell lymphoma
     Dosage: 2 MG, 1X/DAY
     Route: 042
     Dates: start: 20250918, end: 20250918
  6. RITUXIMAB [Concomitant]
     Active Substance: RITUXIMAB
     Indication: Diffuse large B-cell lymphoma
     Dosage: 600 MG
     Dates: start: 20250917, end: 20250917

REACTIONS (2)
  - Myocarditis [Recovering/Resolving]
  - Myocardial injury [Recovering/Resolving]

NARRATIVE: CASE EVENT DATE: 20251103
